FAERS Safety Report 7213888 (Version 6)
Quarter: 2013Q3

REPORT INFORMATION
  Report Type: Spontaneous
  Country: US (occurrence: US)
  Receive Date: 20091214
  Receipt Date: 20130801
  Transmission Date: 20140515
  Serious: Yes (Hospitalization, Other)
  Sender: FDA-Public Use
  Company Number: US-ROCHE-649883

PATIENT
  Age: 22 Year
  Sex: Male
  Weight: 74.4 kg

DRUGS (5)
  1. ACCUTANE [Suspect]
     Indication: ACNE
     Route: 065
     Dates: start: 1995, end: 1996
  2. ACCUTANE [Suspect]
     Route: 065
  3. ACCUTANE [Suspect]
     Route: 065
  4. ACCUTANE [Suspect]
     Route: 065
  5. KEFLEX [Concomitant]
     Indication: ACNE
     Route: 065

REACTIONS (24)
  - Inflammatory bowel disease [Unknown]
  - Colitis [Unknown]
  - Gastrointestinal necrosis [Recovered/Resolved]
  - Gastrointestinal stoma complication [Recovered/Resolved]
  - Small intestinal obstruction [Recovered/Resolved]
  - Ileus paralytic [Unknown]
  - Abscess [Unknown]
  - Pancreatitis [Unknown]
  - Crohn^s disease [Unknown]
  - Anal abscess [Unknown]
  - Atelectasis [Recovering/Resolving]
  - Lung infiltration [Recovering/Resolving]
  - Ascites [Unknown]
  - Anal fistula [Unknown]
  - Pouchitis [Unknown]
  - Ingrowing nail [Unknown]
  - Dry skin [Unknown]
  - Blood bilirubin increased [Unknown]
  - Blood bilirubin unconjugated increased [Unknown]
  - Blood triglycerides increased [Unknown]
  - Lip dry [Unknown]
  - Acne [Unknown]
  - Epistaxis [Recovered/Resolved]
  - Joint stiffness [Unknown]
